FAERS Safety Report 8790463 (Version 2)
Quarter: 2013Q1

REPORT INFORMATION
  Report Type: Spontaneous
  Country: GB (occurrence: None)
  Receive Date: 20120906
  Receipt Date: 20121210
  Transmission Date: 20140127
  Serious: Yes (Disabling, Other)
  Sender: FDA-Public Use
  Company Number: GER/UKI/12/0025608

PATIENT
  Age: 44 Year
  Sex: Male
  Weight: 73.02 kg

DRUGS (3)
  1. CIPROFLOXACIN (CIPROFLOXACIN) [Suspect]
     Indication: EPIDIDYMITIS
     Route: 048
     Dates: start: 20120802, end: 20120808
  2. FLUOXETINE (FLUOXETINE) [Concomitant]
  3. LANSOPRAZOLE (LANSOPRAZOLE) [Concomitant]

REACTIONS (11)
  - Anger [None]
  - Depression [None]
  - Headache [None]
  - Muscle spasms [None]
  - Tendon pain [None]
  - Violence-related symptom [None]
  - Insomnia [None]
  - Malaise [None]
  - Agitation [None]
  - Malaise [None]
  - Fear [None]
